FAERS Safety Report 19399375 (Version 5)
Quarter: 2025Q1

REPORT INFORMATION
  Report Type: Spontaneous
  Country: IL (occurrence: IL)
  Receive Date: 20210610
  Receipt Date: 20250228
  Transmission Date: 20250409
  Serious: Yes (Other)
  Sender: ALK-ABELLO
  Company Number: IL-ALK-ABELLO A/S-2021AA002140

PATIENT

DRUGS (3)
  1. DERMATOPHAGOIDES FARINAE\DERMATOPHAGOIDES PTERONYSSINUS [Suspect]
     Active Substance: DERMATOPHAGOIDES FARINAE\DERMATOPHAGOIDES PTERONYSSINUS
     Indication: Rhinitis allergic
  2. OLEA EUROPAEA POLLEN [Suspect]
     Active Substance: OLEA EUROPAEA POLLEN
     Indication: Rhinitis allergic
  3. ALLERGENIC EXTRACTS [Suspect]
     Active Substance: ALLERGENIC EXTRACTS
     Indication: Rhinitis allergic

REACTIONS (1)
  - Hypersensitivity [Unknown]

NARRATIVE: CASE EVENT DATE: 20210322
